FAERS Safety Report 5260801-7 (Version None)
Quarter: 2007Q1

REPORT INFORMATION
  Report Type: 
  Country: None (occurrence: None)
  Receive Date: 20061208
  Receipt Date: 20051025
  Transmission Date: 20070707
  Serious: Yes (Hospitalization)
  Sender: FDA-Public Use
  Company Number: 2005UW14825

PATIENT
  Age: 48 Year
  Sex: Female
  Weight: 81.646 kg

DRUGS (1)
  1. NEXIUM [Suspect]
     Indication: DUODENOGASTRIC REFLUX
     Dosage: 40 MG PO
     Route: 048
     Dates: end: 20050930

REACTIONS (7)
  - ABDOMINAL DISTENSION [None]
  - AMENORRHOEA [None]
  - FLUID RETENTION [None]
  - GASTRIC POLYPS [None]
  - HEPATIC ENZYME INCREASED [None]
  - NIGHT SWEATS [None]
  - PANCREATITIS ACUTE [None]
